FAERS Safety Report 16730259 (Version 1)
Quarter: 2019Q3

REPORT INFORMATION
  Report Type: Report from Study
  Country: US (occurrence: US)
  Receive Date: 20190822
  Receipt Date: 20190822
  Transmission Date: 20191005
  Serious: Yes (Hospitalization)
  Sender: FDA-Public Use
  Company Number: US-AMGEN-USANI2019133096

PATIENT
  Age: 65 Year
  Sex: Female
  Weight: 78.6 kg

DRUGS (18)
  1. BIOTIN [Concomitant]
     Active Substance: BIOTIN
     Dosage: 1 UNK
     Route: 048
     Dates: start: 20151207
  2. LISINOPRIL AND HYDROCHLOROTHIAZIDE [Concomitant]
     Active Substance: HYDROCHLOROTHIAZIDE\LISINOPRIL
     Dosage: 12.5 MILLIGRAM
     Route: 048
     Dates: start: 20190419
  3. HEPARIN LOCK FLUSH [Concomitant]
     Active Substance: HEPARIN SODIUM
     Dosage: 300 UNK
     Route: 042
     Dates: start: 20190726
  4. FEXOFENADINE HCL [Concomitant]
     Active Substance: FEXOFENADINE HYDROCHLORIDE
     Dosage: 180 MILLIGRAM
     Route: 048
     Dates: start: 20190331
  5. ONDANSETRON HCL [Concomitant]
     Active Substance: ONDANSETRON HYDROCHLORIDE
     Dosage: 8 MILLIGRAM
     Dates: start: 20190726
  6. SODIUM CHLORIDE. [Concomitant]
     Active Substance: SODIUM CHLORIDE
     Dosage: 100 MILLILITER
     Route: 042
     Dates: start: 20190726
  7. DOCETAXEL. [Concomitant]
     Active Substance: DOCETAXEL
     Dosage: 140 MILLIGRAM
     Route: 042
     Dates: start: 20190726
  8. ON BODY INJECTOR(PEGFILGRASTIM) [Suspect]
     Active Substance: PEGFILGRASTIM
     Indication: NEUTROPENIA
     Dosage: 6 MILLIGRAM
     Route: 058
     Dates: start: 20190726
  9. EMLA [LIDOCAINE;PRILOCAINE] [Concomitant]
     Dosage: 2.5 UNK
     Route: 061
     Dates: start: 20190726
  10. CYCLOPHOSPHAMIDE. [Concomitant]
     Active Substance: CYCLOPHOSPHAMIDE
     Dosage: 1120 MILLIGRAM
     Route: 042
     Dates: start: 20190726
  11. DOCUSATE SODIUM. [Concomitant]
     Active Substance: DOCUSATE SODIUM
     Dosage: 100 MILLIGRAM
     Route: 048
     Dates: start: 20190612
  12. IBUPROFEN. [Concomitant]
     Active Substance: IBUPROFEN
     Dosage: 600 MILLIGRAM
     Route: 048
     Dates: start: 20190612
  13. DEXAMETHASONE SODIUM PHOSPHATE. [Concomitant]
     Active Substance: DEXAMETHASONE SODIUM PHOSPHATE
     Dosage: 10 MILLIGRAM
     Route: 042
     Dates: start: 20190726
  14. ROSUVASTATIN CALCIUM. [Concomitant]
     Active Substance: ROSUVASTATIN CALCIUM
     Dosage: 5 MILLIGRAM
     Route: 048
     Dates: start: 20190102
  15. TURMERIC [CURCUMA LONGA RHIZOME] [Concomitant]
     Active Substance: HERBALS\TURMERIC
     Dosage: 2 UNK
     Route: 048
     Dates: start: 20190506
  16. VITAMIN D [COLECALCIFEROL] [Concomitant]
     Active Substance: CHOLECALCIFEROL
     Dosage: 1 UNK
     Route: 048
     Dates: start: 20190506
  17. DEXAMETHASONE. [Concomitant]
     Active Substance: DEXAMETHASONE
     Dosage: 8 MILLIGRAM
     Route: 048
     Dates: start: 20190726
  18. PROCHLORPERAZINE MALEATE. [Concomitant]
     Active Substance: PROCHLORPERAZINE MALEATE
     Dosage: 10 MILLIGRAM
     Route: 048
     Dates: start: 20190726

REACTIONS (1)
  - Febrile neutropenia [Recovered/Resolved]

NARRATIVE: CASE EVENT DATE: 20190801
